FAERS Safety Report 7070260-X (Version None)
Quarter: 2010Q4

REPORT INFORMATION
  Report Type: 
  Country: None (occurrence: None)
  Receive Date: 20101028
  Receipt Date: 20101011
  Transmission Date: 20110411
  Serious: No
  Sender: FDA-Public Use
  Company Number: US-WYE-H18128710

PATIENT
  Age: 70 Year
  Sex: Female
  Weight: 77.18 kg

DRUGS (3)
  1. ADVIL [Suspect]
     Indication: ARTHRITIS
     Route: 048
     Dates: start: 20101006, end: 20101009
  2. THORAZINE [Concomitant]
  3. LOPRESSOR [Concomitant]

REACTIONS (4)
  - CONFUSIONAL STATE [None]
  - FEELING HOT [None]
  - HEADACHE [None]
  - SOMNOLENCE [None]
